FAERS Safety Report 9587786 (Version 2)
Quarter: 2013Q4

REPORT INFORMATION
  Report Type: Spontaneous
  Country: US (occurrence: US)
  Receive Date: 20131003
  Receipt Date: 20131003
  Transmission Date: 20140711
  Serious: Yes (Hospitalization, Other)
  Sender: FDA-Public Use
  Company Number: US-FRI-1000046979

PATIENT
  Age: 31 Year
  Sex: Female
  Weight: 97 kg

DRUGS (4)
  1. LEXAPRO [Suspect]
  2. PRILOSEC [Concomitant]
     Indication: GASTROOESOPHAGEAL REFLUX DISEASE
  3. MACROBID [Concomitant]
  4. TYLENOL [Concomitant]

REACTIONS (4)
  - Oligohydramnios [Recovered/Resolved]
  - Breech presentation [Recovered/Resolved]
  - Hypertension [Unknown]
  - Exposure during pregnancy [Recovered/Resolved]
